FAERS Safety Report 8353068-4 (Version None)
Quarter: 2012Q2

REPORT INFORMATION
  Report Type: 
  Country: None (occurrence: None)
  Receive Date: 20120511
  Receipt Date: 20120430
  Transmission Date: 20120825
  Serious: Yes (Other)
  Sender: FDA-Public Use
  Company Number: DE-PFIZER INC-2012113129

PATIENT
  Sex: Male

DRUGS (12)
  1. MORPHINE SULFATE [Suspect]
     Dosage: 30 MG, DAILY
     Route: 065
     Dates: start: 20120401, end: 20120401
  2. MORPHINE SULFATE [Suspect]
     Dosage: 25 MG, DAILY
     Route: 065
     Dates: start: 20120401, end: 20120401
  3. MORPHINE SULFATE [Suspect]
     Dosage: 55 MG, DAILY
     Route: 065
     Dates: start: 20120401, end: 20120401
  4. MORPHINE SULFATE [Suspect]
     Dosage: 15 MG, DAILY
     Route: 065
     Dates: start: 20120401, end: 20120401
  5. MORPHINE SULFATE [Suspect]
     Dosage: 5 MG, DAILY
     Route: 065
     Dates: start: 20120401, end: 20120401
  6. MORPHINE SULFATE [Suspect]
     Dosage: 50 MG, DAILY
     Route: 065
     Dates: start: 20120401, end: 20120401
  7. MORPHINE SULFATE [Suspect]
     Dosage: 40 MG, DAILY
     Route: 065
     Dates: start: 20120401, end: 20120401
  8. MORPHINE SULFATE [Suspect]
     Dosage: 20 MG, DAILY
     Route: 065
     Dates: start: 20120401, end: 20120401
  9. MORPHINE SULFATE [Suspect]
     Dosage: 10 MG, DAILY
     Route: 065
     Dates: start: 20120401, end: 20120401
  10. MORPHINE SULFATE [Suspect]
     Indication: PAIN
     Dosage: 60 MG, DAILY
     Dates: end: 20120401
  11. MORPHINE SULFATE [Suspect]
     Dosage: 45 MG, DAILY
     Route: 065
     Dates: start: 20120401, end: 20120401
  12. MORPHINE SULFATE [Suspect]
     Dosage: 35 MG, DAILY
     Route: 065
     Dates: start: 20120401, end: 20120401

REACTIONS (5)
  - BLOOD PRESSURE FLUCTUATION [None]
  - TREMOR [None]
  - DRUG WITHDRAWAL SYNDROME [None]
  - AGGRESSION [None]
  - DIARRHOEA [None]
